FAERS Safety Report 23796605 (Version 2)
Quarter: 2024Q2

REPORT INFORMATION
  Report Type: Spontaneous
  Country: JP (occurrence: JP)
  Receive Date: 20240430
  Receipt Date: 20240520
  Transmission Date: 20240716
  Serious: Yes (Hospitalization, Other)
  Sender: FDA-Public Use
  Company Number: JP-NOVOPROD-1211018

PATIENT
  Age: 47 Year
  Sex: Male

DRUGS (9)
  1. RYBELSUS [Suspect]
     Active Substance: SEMAGLUTIDE
     Indication: Type 2 diabetes mellitus
     Dosage: 18 TAB (UNKNOWN AMOUNT OF SEMAGLUTIDE IN A TABLET)
     Route: 048
     Dates: end: 20240415
  2. METFORMIN HYDROCHLORIDE [Suspect]
     Active Substance: METFORMIN HYDROCHLORIDE
     Indication: Product used for unknown indication
     Dosage: 500 MG, QD
     Route: 048
     Dates: end: 20240415
  3. JARDIANCE [Suspect]
     Active Substance: EMPAGLIFLOZIN
     Indication: Type 2 diabetes mellitus
     Dosage: 10 MG, QD
     Route: 048
     Dates: end: 20240415
  4. NIFEDIPINE [Suspect]
     Active Substance: NIFEDIPINE
     Indication: Product used for unknown indication
     Dosage: UNK
     Route: 048
  5. OLMESARTAN [Suspect]
     Active Substance: OLMESARTAN
     Indication: Product used for unknown indication
     Dosage: UNK
     Route: 048
  6. AZELNIDIPINE [Suspect]
     Active Substance: AZELNIDIPINE
     Indication: Product used for unknown indication
     Route: 048
  7. ESTAZOLAM [Suspect]
     Active Substance: ESTAZOLAM
     Indication: Product used for unknown indication
     Route: 048
  8. PEMAFIBRATE [Suspect]
     Active Substance: PEMAFIBRATE
     Indication: Product used for unknown indication
     Dosage: UNK
     Route: 048
  9. TRAZODONE HYDROCHLORIDE [Suspect]
     Active Substance: TRAZODONE HYDROCHLORIDE
     Indication: Product used for unknown indication
     Dosage: UNK
     Route: 048

REACTIONS (7)
  - Hypotension [Recovering/Resolving]
  - Hyperkalaemia [Recovering/Resolving]
  - Suicide attempt [Not Recovered/Not Resolved]
  - Diarrhoea [Recovered/Resolved]
  - Overdose [Unknown]
  - Intentional overdose [Unknown]
  - Renal impairment [Unknown]

NARRATIVE: CASE EVENT DATE: 20240415
